FAERS Safety Report 6575826-9 (Version None)
Quarter: 2010Q1

REPORT INFORMATION
  Report Type: 
  Country: None (occurrence: None)
  Receive Date: 20100202
  Receipt Date: 20100119
  Transmission Date: 20100710
  Serious: Yes (Other)
  Sender: FDA-Public Use
  Company Number: 2010S1000344

PATIENT
  Age: 64 Year
  Sex: Male

DRUGS (4)
  1. PHOSPHOSODA FLAVOR NOT SPECIFIED [Suspect]
     Indication: COLONOSCOPY
     Dosage: 90 ML; TOTAL; PO
     Route: 048
     Dates: start: 20070101, end: 20070101
  2. VERAPAMIL [Concomitant]
  3. LISINOPRIL [Concomitant]
  4. ACTOS [Concomitant]

REACTIONS (1)
  - RENAL IMPAIRMENT [None]
